FAERS Safety Report 10172146 (Version 2)
Quarter: 2014Q2

REPORT INFORMATION
  Report Type: Spontaneous
  Country: IT (occurrence: IT)
  Receive Date: 20140515
  Receipt Date: 20140528
  Transmission Date: 20141212
  Serious: Yes (Hospitalization)
  Sender: FDA-Public Use
  Company Number: PHHY2014IT057360

PATIENT
  Age: 83 Year
  Sex: Female

DRUGS (11)
  1. RASILEZ HCT [Suspect]
     Indication: HYPERTENSION
     Dosage: 1 DF, DAY
     Route: 048
     Dates: start: 20140101, end: 20140418
  2. ESOMEPRAZOLE [Concomitant]
     Dosage: 40 MG, UNK
     Route: 048
  3. NORVASC [Concomitant]
     Dosage: UNK UKN, UNK
     Route: 048
  4. BIVIS [Concomitant]
     Dosage: UNK UKN, UNK
     Route: 048
  5. PANTECTA [Concomitant]
     Dosage: UNK UKN, UNK
     Route: 048
  6. ARIXTRA [Concomitant]
  7. CARDIOASPIRIN [Concomitant]
     Dosage: UNK UKN, UNK
     Route: 048
  8. TORVAST [Concomitant]
     Dosage: UNK UKN, UNK
     Route: 048
  9. CARDICOR [Concomitant]
     Dosage: UNK UKN, UNK
     Route: 048
  10. PURSENID [Concomitant]
     Dosage: UNK UKN, UNK
  11. LEVOPRAID [Concomitant]
     Dosage: UNK UKN, UNK
     Route: 048

REACTIONS (5)
  - Decreased appetite [Unknown]
  - Abdominal pain upper [Unknown]
  - Asthenia [Unknown]
  - Dizziness [Unknown]
  - Nausea [Unknown]
